FAERS Safety Report 5239011-5 (Version None)
Quarter: 2007Q1

REPORT INFORMATION
  Report Type: 
  Country: None (occurrence: None)
  Receive Date: 20061208
  Receipt Date: 20050615
  Transmission Date: 20070707
  Serious: Yes (Other)
  Sender: FDA-Public Use
  Company Number: 2005UW09155

PATIENT
  Age: 81 Year
  Sex: Male
  Weight: 81.646 kg

DRUGS (8)
  1. CRESTOR [Suspect]
     Indication: HYPERCHOLESTEROLAEMIA
     Dosage: 10 MG QD PO
     Route: 048
     Dates: start: 20050612
  2. AMARYL [Concomitant]
  3. ASPIRIN [Concomitant]
  4. HYDROCHLOROTHIAZIDE [Concomitant]
  5. COZAAR [Concomitant]
  6. LORAZEPAM [Concomitant]
  7. XALATAN [Concomitant]
  8. ZOLOFT [Concomitant]

REACTIONS (2)
  - CONSTIPATION [None]
  - HYPOAESTHESIA [None]
